FAERS Safety Report 8439621-8 (Version None)
Quarter: 2012Q2

REPORT INFORMATION
  Report Type: 
  Country: None (occurrence: None)
  Receive Date: 20120615
  Receipt Date: 20120612
  Transmission Date: 20120825
  Serious: Yes (Other)
  Sender: FDA-Public Use
  Company Number: US-FRI-1000027321

PATIENT
  Sex: Male

DRUGS (5)
  1. VIIBRYD [Suspect]
     Indication: DEPRESSION
     Dosage: 10 MG
     Route: 048
     Dates: start: 20111020, end: 20111026
  2. VIIBRYD [Suspect]
     Indication: ANXIETY
     Dosage: 40 MG
     Route: 048
     Dates: start: 20111103, end: 20111205
  3. VIIBRYD [Suspect]
     Indication: PANIC DISORDER
     Dosage: 20 MG
     Route: 048
     Dates: start: 20111027, end: 20111102
  4. XANAX [Concomitant]
     Dosage: 2 MG
  5. PREVACID [Concomitant]
     Dosage: 30 MG

REACTIONS (1)
  - SUICIDAL IDEATION [None]
